FAERS Safety Report 6470150-7 (Version None)
Quarter: 2009Q4

REPORT INFORMATION
  Report Type: 
  Country: None (occurrence: None)
  Receive Date: 20091203
  Receipt Date: 20071206
  Transmission Date: 20100525
  Serious: Yes (Life-Threatening, Other)
  Sender: FDA-Public Use
  Company Number: US-ELI_LILLY_AND_COMPANY-US200712001316

PATIENT
  Age: 8 Year
  Sex: Female

DRUGS (1)
  1. HUMATROPE [Suspect]
     Indication: TURNER'S SYNDROME
     Dosage: 0.05 MG/KG, UNK

REACTIONS (10)
  - ABDOMINAL PAIN [None]
  - BLOOD CHOLESTEROL INCREASED [None]
  - DECREASED APPETITE [None]
  - FAILURE TO THRIVE [None]
  - FEMUR FRACTURE [None]
  - HEPATIC NEOPLASM MALIGNANT NON-RESECTABLE [None]
  - LIVER TRANSPLANT [None]
  - NAUSEA [None]
  - OSTEOPENIA [None]
  - POST PROCEDURAL COMPLICATION [None]
